FAERS Safety Report 5568599-X (Version None)
Quarter: 2007Q4

REPORT INFORMATION
  Report Type: 
  Country: None (occurrence: None)
  Receive Date: 20071220
  Receipt Date: 20071213
  Transmission Date: 20080405
  Serious: Yes (Life-Threatening, Hospitalization)
  Sender: FDA-Public Use
  Company Number: US-MERCK-0712USA06534

PATIENT
  Age: 50 Year
  Sex: Male

DRUGS (2)
  1. INVANZ [Suspect]
     Indication: PROPHYLAXIS
     Route: 065
     Dates: start: 20071201, end: 20071201
  2. TORADOL [Concomitant]
     Route: 042

REACTIONS (2)
  - RENAL FAILURE [None]
  - RENAL TUBULAR NECROSIS [None]
